FAERS Safety Report 5411765-4 (Version None)
Quarter: 2007Q3

REPORT INFORMATION
  Report Type: 
  Country: None (occurrence: None)
  Receive Date: 20070713
  Receipt Date: 20070316
  Transmission Date: 20080115
  Serious: No
  Sender: FDA-Public Use
  Company Number: 2007SP000956

PATIENT
  Age: 68 Year
  Sex: Female
  Weight: 70.3075 kg

DRUGS (7)
  1. LUNESTA [Suspect]
     Indication: INSOMNIA
     Dosage: 2 MG;HS;ORAL ; 3 MG;PRN;ORAL; 2 MG;ORAL
     Route: 048
     Dates: start: 20070101, end: 20070201
  2. LUNESTA [Suspect]
     Indication: INSOMNIA
     Dosage: 2 MG;HS;ORAL ; 3 MG;PRN;ORAL; 2 MG;ORAL
     Route: 048
     Dates: start: 20070201
  3. LUNESTA [Suspect]
     Indication: INSOMNIA
     Dosage: 2 MG;HS;ORAL ; 3 MG;PRN;ORAL; 2 MG;ORAL
     Route: 048
     Dates: start: 20070315
  4. EFFEXOR [Concomitant]
  5. SYNTHROID [Concomitant]
  6. LOVASTATIN [Concomitant]
  7. REQUIP [Concomitant]

REACTIONS (1)
  - DRUG EFFECT DECREASED [None]
